FAERS Safety Report 21831826 (Version 1)
Quarter: 2023Q1

REPORT INFORMATION
  Report Type: Spontaneous
  Country: CH (occurrence: CH)
  Receive Date: 20230106
  Receipt Date: 20230106
  Transmission Date: 20230418
  Serious: Yes (Life-Threatening)
  Sender: FDA-Public Use
  Company Number: None

PATIENT
  Age: 75 Year
  Sex: Female
  Weight: 80 kg

DRUGS (9)
  1. METFORMIN [Suspect]
     Active Substance: METFORMIN HYDROCHLORIDE
     Indication: Diabetes mellitus
     Dosage: LONG TERM, THERAPY START DATE : NASK,
     Route: 048
     Dates: end: 20221207
  2. POLYETHYLENE GLYCOL 3350\POTASSIUM\SODIUM CHLORIDE\SODIUM SULFATE [Suspect]
     Active Substance: POLYETHYLENE GLYCOL 3350\POTASSIUM\SODIUM CHLORIDE\SODIUM SULFATE
     Indication: Colonoscopy
     Dosage: DRUG NAME : PLENVU. DOSE 1 AND 2, AND EXTRA DOSE 1 (3 DOSES TOTAL) ; IN TOTAL
     Route: 048
     Dates: start: 20221205, end: 20221205
  3. XULTOPHY 100/3.6 [Suspect]
     Active Substance: INSULIN DEGLUDEC\LIRAGLUTIDE
     Indication: Diabetes mellitus
     Dosage: LONG TERM,
     Route: 058
     Dates: end: 20221207
  4. DULOXETINE HYDROCHLORIDE [Concomitant]
     Active Substance: DULOXETINE HYDROCHLORIDE
     Indication: Depression
     Dosage: LONG TERM,
     Route: 048
  5. POLYETHYLENE GLYCOLS [Concomitant]
     Active Substance: POLYETHYLENE GLYCOLS
     Indication: Constipation
     Dosage: 2 DOSAGE FORMS DAILY; 2 SACHETS/DAY
     Route: 048
     Dates: end: 20221205
  6. BENSERAZIDE HYDROCHLORIDE\LEVODOPA [Concomitant]
     Active Substance: BENSERAZIDE HYDROCHLORIDE\LEVODOPA
     Indication: Parkinsonism
     Dosage: LONG TERM (1X AT 12H00 AND 1X AT 18H00),
     Route: 048
     Dates: start: 20221205
  7. BENSERAZIDE HYDROCHLORIDE\LEVODOPA [Concomitant]
     Active Substance: BENSERAZIDE HYDROCHLORIDE\LEVODOPA
     Indication: Parkinsonism
     Dosage: LONG TERM (1X AT 08H00 AND 1X AT 22H00),
     Route: 048
  8. RAMIPRIL [Concomitant]
     Active Substance: RAMIPRIL
     Indication: Hypertension
     Dosage: LONG TERM,
     Route: 048
  9. CLORAZEPATE ZENTIVA [Concomitant]
     Indication: Anxiety
     Dosage: LONG TERM STOPPED ON 7.12.22 BUT RESUMED AROUND 10.12.22,
     Route: 048

REACTIONS (8)
  - Dehydration [Recovered/Resolved]
  - Hypovolaemic shock [Recovered/Resolved]
  - Hypernatraemia [Recovered/Resolved]
  - Acute kidney injury [Recovered/Resolved]
  - Ischaemic hepatitis [Recovered/Resolved]
  - Lactic acidosis [Recovered/Resolved]
  - Coma scale abnormal [Recovered/Resolved]
  - Intentional product use issue [Recovered/Resolved]

NARRATIVE: CASE EVENT DATE: 20221205
